FAERS Safety Report 7873357-7 (Version None)
Quarter: 2011Q4

REPORT INFORMATION
  Report Type: 
  Country: None (occurrence: None)
  Receive Date: 20111027
  Receipt Date: 20111013
  Transmission Date: 20120403
  Serious: Yes (Other)
  Sender: FDA-Public Use
  Company Number: TCI2011A05564

PATIENT

DRUGS (1)
  1. ACTOS [Suspect]
     Route: 048
     Dates: start: 20060201, end: 20110801

REACTIONS (2)
  - FATIGUE [None]
  - BLADDER CANCER [None]
